FAERS Safety Report 9740040 (Version 2)
Quarter: 2013Q4

REPORT INFORMATION
  Report Type: Spontaneous
  Country: JP (occurrence: JP)
  Receive Date: 20131209
  Receipt Date: 20131209
  Transmission Date: 20140711
  Serious: Yes (Hospitalization, Other)
  Sender: FDA-Public Use
  Company Number: JP-ACTELION-A-CH2013-91265

PATIENT
  Age: 77 Year
  Sex: Male
  Weight: 62.2 kg

DRUGS (10)
  1. TRACLEER [Suspect]
     Indication: PULMONARY ARTERIAL HYPERTENSION
     Dosage: 125 MG, BID
     Route: 048
     Dates: start: 20131001, end: 20131105
  2. TRACLEER [Suspect]
     Dosage: 62.5 MG, BID
     Route: 048
     Dates: start: 20130903, end: 20130930
  3. SPIRONOLACTONE [Suspect]
     Indication: RIGHT VENTRICULAR FAILURE
     Dosage: 25 MG, UNK
     Route: 048
     Dates: start: 20130828
  4. CEFEPIME HYDROCHLORIDE [Suspect]
     Indication: PNEUMONIA
     Dosage: 2 G, UNK
     Dates: start: 20131022, end: 20131028
  5. AZITHROMYCIN DIHYDRATE [Suspect]
     Indication: PNEUMONIA
     Dosage: UNK
     Dates: start: 20131022, end: 20131022
  6. FUROSEMIDE [Concomitant]
  7. VILDAGLIPTIN [Concomitant]
  8. TIOTROPIUM BROMIDE MONOHYDRATE [Concomitant]
  9. CARBOCISTEINE [Concomitant]
  10. OXYGEN [Concomitant]

REACTIONS (7)
  - Hepatic function abnormal [Recovering/Resolving]
  - Aspartate aminotransferase increased [Recovering/Resolving]
  - Alanine aminotransferase increased [Recovering/Resolving]
  - Gamma-glutamyltransferase increased [Recovering/Resolving]
  - Blood bilirubin increased [Recovering/Resolving]
  - Pneumonia [Recovered/Resolved]
  - Constipation [Recovered/Resolved]
